FAERS Safety Report 18787026 (Version 1)
Quarter: 2021Q1

REPORT INFORMATION
  Report Type: Spontaneous
  Country: US (occurrence: US)
  Receive Date: 20210126
  Receipt Date: 20210126
  Transmission Date: 20210419
  Serious: Yes (Other)
  Sender: FDA-Public Use
  Company Number: None

PATIENT
  Age: 78 Year
  Sex: Female
  Weight: 76.5 kg

DRUGS (11)
  1. PROZAC [Concomitant]
     Active Substance: FLUOXETINE HYDROCHLORIDE
  2. ALEVE [Concomitant]
     Active Substance: NAPROXEN SODIUM
  3. GLUCOASMINE CHONDROITIN COMPLEX [Concomitant]
  4. CENTRUM SILVER 50+ WOMEN [Concomitant]
  5. FUROSEMIDE. [Concomitant]
     Active Substance: FUROSEMIDE
  6. ENTRESTO [Concomitant]
     Active Substance: SACUBITRIL\VALSARTAN
  7. DESMOPRESSIN [Concomitant]
     Active Substance: DESMOPRESSIN
  8. ZELBORAF [Suspect]
     Active Substance: VEMURAFENIB
     Indication: HISTIOCYTOSIS
     Route: 048
     Dates: start: 20180522
  9. CANNABIDIOL [Concomitant]
     Active Substance: CANNABIDIOL
  10. CRESTOR [Concomitant]
     Active Substance: ROSUVASTATIN CALCIUM
  11. METOPROLOL. [Concomitant]
     Active Substance: METOPROLOL

REACTIONS (1)
  - Rash [None]

NARRATIVE: CASE EVENT DATE: 20210126
